FAERS Safety Report 4465975-3 (Version None)
Quarter: 2004Q4

REPORT INFORMATION
  Report Type: 
  Country: None (occurrence: None)
  Receive Date: 20041005
  Receipt Date: 20040921
  Transmission Date: 20050328
  Serious: Yes (Hospitalization)
  Sender: FDA-Public Use
  Company Number: US-BRISTOL-MYERS SQUIBB COMPANY-12708459

PATIENT
  Age: 55 Year
  Sex: Male

DRUGS (1)
  1. CETUXIMAB [Suspect]
     Indication: COLORECTAL CANCER METASTATIC
     Dosage: DOSE INTERRUPTED DUE TO EVENT.
     Route: 042
     Dates: start: 20040720

REACTIONS (3)
  - DEEP VEIN THROMBOSIS [None]
  - DISEASE RECURRENCE [None]
  - HAEMOGLOBIN DECREASED [None]
